FAERS Safety Report 4687845-8 (Version None)
Quarter: 2005Q2

REPORT INFORMATION
  Report Type: 
  Country: None (occurrence: None)
  Receive Date: 20050610
  Receipt Date: 20050610
  Transmission Date: 20051028
  Serious: Yes (Life-Threatening)
  Sender: FDA-Public Use
  Company Number: None

PATIENT
  Age: 78 Year
  Sex: Male
  Weight: 113 kg

DRUGS (10)
  1. CELEBREX [Suspect]
     Indication: ARTHRALGIA
     Dosage: 100MG  TWICE DAILY   ORAL
     Route: 048
  2. INSULIN [Concomitant]
  3. ISOSORBIDE DINITRATE [Concomitant]
  4. MORPHINE [Concomitant]
  5. RANITIDINE [Concomitant]
  6. ACETAMINOPHEN [Concomitant]
  7. BISACODYL [Concomitant]
  8. TEMAZEPAM [Concomitant]
  9. MIDAZOLAM HCL [Concomitant]
  10. TIGAN [Concomitant]

REACTIONS (2)
  - MYOCARDIAL INFARCTION [None]
  - POST PROCEDURAL COMPLICATION [None]
